FAERS Safety Report 4544957-7 (Version None)
Quarter: 2004Q4

REPORT INFORMATION
  Report Type: 
  Country: None (occurrence: None)
  Receive Date: 20041230
  Receipt Date: 20041221
  Transmission Date: 20050328
  Serious: Yes (Other)
  Sender: FDA-Public Use
  Company Number: S04-USA-07727-01

PATIENT
  Age: 59 Year
  Sex: Female

DRUGS (2)
  1. LEXAPRO [Suspect]
     Indication: ANXIETY
     Dates: start: 20040601, end: 20040101
  2. TAMOXIFEN CITRATE [Concomitant]

REACTIONS (4)
  - ABSCESS [None]
  - DRUG INEFFECTIVE [None]
  - FURUNCLE [None]
  - VAGINAL ABSCESS [None]
